FAERS Safety Report 4815917-3 (Version None)
Quarter: 2005Q4

REPORT INFORMATION
  Report Type: 
  Country: None (occurrence: None)
  Receive Date: 20051027
  Receipt Date: 20051013
  Transmission Date: 20060501
  Serious: Yes (Death, Hospitalization, Other)
  Sender: FDA-Public Use
  Company Number: 2005-01328

PATIENT
  Age: 17 Year
  Sex: Male

DRUGS (2)
  1. VELCADE [Suspect]
     Indication: ACUTE LYMPHOCYTIC LEUKAEMIA
     Dosage: 2.90 MG, 2/WEEK, INTRAVENOUS
     Route: 042
     Dates: start: 20050324, end: 20050404
  2. INTRON A [Concomitant]

REACTIONS (15)
  - DEPRESSED LEVEL OF CONSCIOUSNESS [None]
  - DYSPNOEA [None]
  - FATIGUE [None]
  - GENERAL PHYSICAL HEALTH DETERIORATION [None]
  - INCREASED UPPER AIRWAY SECRETION [None]
  - INFECTION [None]
  - LUNG INFILTRATION [None]
  - MUSCULAR WEAKNESS [None]
  - PAIN [None]
  - PETECHIAE [None]
  - PULMONARY OEDEMA [None]
  - RESPIRATORY FAILURE [None]
  - SKIN STRIAE [None]
  - WEIGHT INCREASED [None]
  - WHEEZING [None]
